FAERS Safety Report 22084075 (Version 1)
Quarter: 2023Q1

REPORT INFORMATION
  Report Type: Spontaneous
  Country: FR (occurrence: FR)
  Receive Date: 20230310
  Receipt Date: 20230310
  Transmission Date: 20230418
  Serious: Yes (Other)
  Sender: FDA-Public Use
  Company Number: FR-ANIPHARMA-2023-FR-000054

PATIENT
  Age: 42 Year
  Sex: Female
  Weight: 70 kg

DRUGS (7)
  1. CANDESARTAN CILEXETIL [Suspect]
     Active Substance: CANDESARTAN CILEXETIL
     Indication: Lupus nephritis
     Dosage: 16 MG PER DAY
     Route: 048
     Dates: start: 201606, end: 20230110
  2. PLAQUENIL [Suspect]
     Active Substance: HYDROXYCHLOROQUINE SULFATE
     Dosage: 200 MG MORNING AND EVENING
     Route: 048
     Dates: start: 201902, end: 20230110
  3. PREDNISONE [Suspect]
     Active Substance: PREDNISONE
     Dosage: 5 MG DAILY
     Route: 048
     Dates: start: 201902
  4. CALCIFEDIOL [Concomitant]
     Active Substance: CALCIFEDIOL
     Dosage: 15 MG/ 100 ML
     Route: 065
  5. PERINDOPRIL [Concomitant]
     Active Substance: PERINDOPRIL
     Dosage: 2.5 MG
     Route: 065
     Dates: start: 201512
  6. CHOLECALCIFEROL [Concomitant]
     Active Substance: CHOLECALCIFEROL
     Dosage: 50,000 IU ORAL SOLUTION IN AN AMPOULE
     Route: 065
  7. CHOLECALCIFEROL [Concomitant]
     Active Substance: CHOLECALCIFEROL
     Dosage: 100,000 IU ORAL SOLUTION IN AN AMPOULE
     Route: 065

REACTIONS (3)
  - Anaemia [Not Recovered/Not Resolved]
  - Anaemia macrocytic [Not Recovered/Not Resolved]
  - Product use in unapproved indication [Not Recovered/Not Resolved]

NARRATIVE: CASE EVENT DATE: 20160601
